FAERS Safety Report 19906303 (Version 1)
Quarter: 2021Q3

REPORT INFORMATION
  Report Type: Spontaneous
  Country: AU (occurrence: AU)
  Receive Date: 20210930
  Receipt Date: 20210930
  Transmission Date: 20211014
  Serious: Yes (Hospitalization)
  Sender: FDA-Public Use
  Company Number: AU-GILEAD-2021-0550359

PATIENT
  Age: 65 Year
  Sex: Female

DRUGS (1)
  1. EPCLUSA [Suspect]
     Active Substance: SOFOSBUVIR\VELPATASVIR
     Indication: HEPATITIS C
     Dosage: UNK
     Route: 048
     Dates: start: 202105, end: 202105

REACTIONS (4)
  - Fatigue [Recovering/Resolving]
  - Mobility decreased [Recovering/Resolving]
  - Muscular weakness [Recovering/Resolving]
  - Vomiting [Recovering/Resolving]

NARRATIVE: CASE EVENT DATE: 202105
